FAERS Safety Report 5496410-4 (Version None)
Quarter: 2007Q4

REPORT INFORMATION
  Report Type: 
  Country: None (occurrence: None)
  Receive Date: 20071023
  Receipt Date: 20071023
  Transmission Date: 20080405
  Serious: Yes (Hospitalization)
  Sender: FDA-Public Use
  Company Number: None

PATIENT
  Sex: Female

DRUGS (1)
  1. MYFORTIC [Suspect]

REACTIONS (11)
  - ACIDOSIS [None]
  - ANAEMIA [None]
  - CHRONIC ALLOGRAFT NEPHROPATHY [None]
  - DIARRHOEA [None]
  - FISTULA [None]
  - HAEMODIALYSIS [None]
  - HYPERKALAEMIA [None]
  - KIDNEY TRANSPLANT REJECTION [None]
  - RENAL FAILURE [None]
  - SUPERIOR VENA CAVAL OCCLUSION [None]
  - UPPER RESPIRATORY TRACT INFECTION [None]
